FAERS Safety Report 19687608 (Version 1)
Quarter: 2021Q3

REPORT INFORMATION
  Report Type: Report from Study
  Country: None (occurrence: US)
  Receive Date: 20210812
  Receipt Date: 20210812
  Transmission Date: 20211014
  Serious: Yes (Hospitalization, Other)
  Sender: FDA-Public Use
  Company Number: US-ABBVIE-21K-163-4033259-00

PATIENT
  Sex: Female

DRUGS (1)
  1. VENCLEXTA [Suspect]
     Active Substance: VENETOCLAX
     Indication: PRODUCT USED FOR UNKNOWN INDICATION
     Route: 048
     Dates: start: 20210713, end: 2021

REACTIONS (4)
  - Hospitalisation [Unknown]
  - Hospice care [Unknown]
  - Dehydration [Unknown]
  - Dysphagia [Unknown]

NARRATIVE: CASE EVENT DATE: 2021
